FAERS Safety Report 23259443 (Version 7)
Quarter: 2025Q1

REPORT INFORMATION
  Report Type: Report from Study
  Country: BR (occurrence: BR)
  Receive Date: 20231204
  Receipt Date: 20250314
  Transmission Date: 20250408
  Serious: Yes (Other)
  Sender: IPSEN BIOPHARMACEUTICALS, INC.
  Company Number: BR-Korea IPSEN-2023-26822

PATIENT
  Age: 40 Year
  Sex: Male
  Weight: 127 kg

DRUGS (7)
  1. LANREOTIDE ACETATE [Suspect]
     Active Substance: LANREOTIDE ACETATE
     Indication: Acromegaly
     Route: 058
     Dates: start: 20231103
  2. LANREOTIDE ACETATE [Suspect]
     Active Substance: LANREOTIDE ACETATE
     Route: 058
     Dates: start: 202407
  3. HYDROCHLOROTHIAZIDE [Concomitant]
     Active Substance: HYDROCHLOROTHIAZIDE
     Indication: Hypertension
     Dosage: 1 TABLET PER DAY, ONGOING
     Route: 048
     Dates: start: 20230712
  4. LOSARTAN [Concomitant]
     Active Substance: LOSARTAN
     Indication: Hypertension
     Dosage: 1 TABLET PER DAY, ONGOING
     Route: 048
     Dates: start: 202308
  5. RIVAROXABAN [Concomitant]
     Active Substance: RIVAROXABAN
     Indication: Anticoagulant therapy
     Dosage: 1 TABLET PER DAY, ONGOING
     Route: 048
  6. CLOMID [Concomitant]
     Active Substance: CLOMIPHENE CITRATE
     Indication: Blood testosterone decreased
     Route: 048
     Dates: start: 202310
  7. DEPAKENE [Concomitant]
     Active Substance: VALPROIC ACID
     Dosage: 1 PER DAY, ONGOING
     Route: 048
     Dates: start: 2008

REACTIONS (14)
  - Syncope [Recovered/Resolved]
  - Loss of consciousness [Recovered/Resolved]
  - Visual impairment [Recovered/Resolved]
  - Feeling cold [Recovered/Resolved]
  - Peripheral coldness [Recovered/Resolved]
  - Tremor [Recovered/Resolved]
  - Disease progression [Unknown]
  - Headache [Recovering/Resolving]
  - Fatigue [Recovering/Resolving]
  - Somnolence [Recovering/Resolving]
  - Diarrhoea [Recovering/Resolving]
  - Pyrexia [Recovering/Resolving]
  - Inappropriate schedule of product administration [Unknown]
  - Product dispensing error [Unknown]

NARRATIVE: CASE EVENT DATE: 20231103
